FAERS Safety Report 19178006 (Version 1)
Quarter: 2021Q2

REPORT INFORMATION
  Report Type: Other
  Country: US (occurrence: US)
  Receive Date: 20210426
  Receipt Date: 20210426
  Transmission Date: 20210717
  Serious: Yes (Hospitalization)
  Sender: FDA-Public Use
  Company Number: US-ORCHID HEALTHCARE-2109788

PATIENT
  Age: 33 Year
  Sex: Male

DRUGS (3)
  1. LEVETIRACETAM. [Suspect]
     Active Substance: LEVETIRACETAM
     Indication: GENERALISED TONIC-CLONIC SEIZURE
     Route: 042
  2. HALOPERIDOL. [Concomitant]
     Active Substance: HALOPERIDOL
     Route: 042
  3. ZIPRASIDONE. [Concomitant]
     Active Substance: ZIPRASIDONE
     Route: 030

REACTIONS (1)
  - Rhabdomyolysis [Recovered/Resolved]
